FAERS Safety Report 9891705 (Version 1)
Quarter: 2014Q1

REPORT INFORMATION
  Report Type: Spontaneous
  Country: JP (occurrence: JP)
  Receive Date: 20140212
  Receipt Date: 20140212
  Transmission Date: 20141002
  Serious: Yes (Other)
  Sender: FDA-Public Use
  Company Number: JP-PFIZER INC-2014037505

PATIENT
  Sex: Female

DRUGS (1)
  1. GABAPEN [Suspect]
     Route: 048

REACTIONS (2)
  - Drug eruption [Unknown]
  - Hepatic function abnormal [Recovering/Resolving]
